FAERS Safety Report 25658141 (Version 2)
Quarter: 2025Q3

REPORT INFORMATION
  Report Type: Report from Study
  Country: US (occurrence: US)
  Receive Date: 20250808
  Receipt Date: 20250908
  Transmission Date: 20251020
  Serious: No
  Sender: SANOFI AVENTIS
  Company Number: US-SA-2025SA230142

PATIENT
  Age: 57 Year
  Sex: Female
  Weight: 63.64 kg

DRUGS (30)
  1. AGALSIDASE BETA [Suspect]
     Active Substance: AGALSIDASE BETA
     Indication: Fabry^s disease
     Dosage: 65 MG, QOW
     Dates: start: 20070323
  2. SODIUM CHLORIDE [Concomitant]
     Active Substance: SODIUM CHLORIDE
  3. EPINEPHRINE [Concomitant]
     Active Substance: EPINEPHRINE
  4. STERILE WATER [Concomitant]
     Active Substance: WATER
  5. Severe cold + flu [Concomitant]
  6. ATORVASTATIN CALCIUM [Concomitant]
     Active Substance: ATORVASTATIN CALCIUM
  7. ALENDRONATE SODIUM [Concomitant]
     Active Substance: ALENDRONATE SODIUM
  8. NITROFURANTOIN [Concomitant]
     Active Substance: NITROFURANTOIN
  9. PREDNISONE [Concomitant]
     Active Substance: PREDNISONE
  10. CODEINE [Concomitant]
     Active Substance: CODEINE
  11. GUAIFENESIN [Concomitant]
     Active Substance: GUAIFENESIN
  12. Comirnaty [Concomitant]
  13. HEPARIN [Concomitant]
     Active Substance: HEPARIN SODIUM
  14. SODIUM CHLORIDE [Concomitant]
     Active Substance: SODIUM CHLORIDE
  15. MIRALAX [Concomitant]
     Active Substance: POLYETHYLENE GLYCOL 3350
  16. VITAMINS [Concomitant]
     Active Substance: VITAMINS
  17. STOOL SOFTENER (DOCUSATE) [Concomitant]
     Active Substance: DOCUSATE
  18. LIDOCAINE [Concomitant]
     Active Substance: LIDOCAINE
  19. PRILOCAINE [Concomitant]
     Active Substance: PRILOCAINE
  20. LATANOPROST [Concomitant]
     Active Substance: LATANOPROST
  21. WARFARIN SODIUM [Concomitant]
     Active Substance: WARFARIN SODIUM
  22. FLUDROCORTISONE ACETATE [Concomitant]
     Active Substance: FLUDROCORTISONE ACETATE
  23. VITAMIN D3 [Concomitant]
     Active Substance: CHOLECALCIFEROL
  24. TACROLIMUS [Concomitant]
     Active Substance: TACROLIMUS
  25. ACETAMINOPHEN [Concomitant]
     Active Substance: ACETAMINOPHEN
  26. PROGESTERONE [Concomitant]
     Active Substance: PROGESTERONE
  27. SHINGRIX [Concomitant]
     Active Substance: RECOMBINANT VARICELLA ZOSTER VIRUS (VZV) GLYCOPROTEIN E
  28. MAGNESIUM [Concomitant]
     Active Substance: MAGNESIUM
  29. ONDANSETRON HYDROCHLORIDE [Concomitant]
     Active Substance: ONDANSETRON HYDROCHLORIDE
  30. AZELASTINE HYDROCHLORIDE\FLUTICASONE PROPIONATE [Concomitant]
     Active Substance: AZELASTINE HYDROCHLORIDE\FLUTICASONE PROPIONATE

REACTIONS (2)
  - Blood culture positive [Unknown]
  - Urinary tract infection [Unknown]
